FAERS Safety Report 6664425-6 (Version None)
Quarter: 2010Q2

REPORT INFORMATION
  Report Type: 
  Country: None (occurrence: None)
  Receive Date: 20100401
  Receipt Date: 20100329
  Transmission Date: 20101027
  Serious: Yes (Death)
  Sender: FDA-Public Use
  Company Number: GXKR2010DE03640

PATIENT
  Sex: Male
  Weight: 81 kg

DRUGS (5)
  1. AZITHROMYCIN SANDOZ (NGX) [Suspect]
     Dosage: 500 MG, QD
     Route: 048
     Dates: start: 20091105, end: 20091107
  2. FORMOTEROL [Concomitant]
     Dosage: 12 ?G, 2X1
  3. PREDNISOLON [Concomitant]
     Dosage: 2X5MG 5 DAYS, THEN 1X5 MG
  4. NOVOPULMON [Concomitant]
     Dosage: 1X 400 ?G
  5. BEROTEC [Concomitant]
     Dosage: AS NEEDED

REACTIONS (5)
  - ASTHMA [None]
  - CYANOSIS [None]
  - DYSPHAGIA [None]
  - DYSPNOEA [None]
  - SYNCOPE [None]
